FAERS Safety Report 23287922 (Version 1)
Quarter: 2023Q4

REPORT INFORMATION
  Report Type: Spontaneous
  Country: AU (occurrence: AU)
  Receive Date: 20231212
  Receipt Date: 20231212
  Transmission Date: 20240110
  Serious: Yes (Other)
  Sender: FDA-Public Use
  Company Number: AU-AMNEAL PHARMACEUTICALS-2023-AMRX-04281

PATIENT
  Age: 24 Year
  Sex: Female

DRUGS (4)
  1. NORETHINDRONE ACETATE [Suspect]
     Active Substance: NORETHINDRONE ACETATE
     Indication: Intermenstrual bleeding
     Dosage: 5 MILLIGRAM, DAILY
     Route: 065
  2. NORETHINDRONE ACETATE [Suspect]
     Active Substance: NORETHINDRONE ACETATE
     Dosage: 10 MILLIGRAM, DAILY
     Route: 065
  3. ETHINYL ESTRADIOL\LEVONORGESTREL [Suspect]
     Active Substance: ETHINYL ESTRADIOL\LEVONORGESTREL
     Indication: Menstruation irregular
     Dosage: 50 MCG/125 MCG
     Route: 065
  4. ETHINYL ESTRADIOL\LEVONORGESTREL [Suspect]
     Active Substance: ETHINYL ESTRADIOL\LEVONORGESTREL
     Indication: Contraception

REACTIONS (2)
  - Hepatic adenoma [Recovering/Resolving]
  - Haemorrhage [Unknown]
